FAERS Safety Report 4634777-7 (Version None)
Quarter: 2005Q2

REPORT INFORMATION
  Report Type: 
  Country: None (occurrence: None)
  Receive Date: 20050412
  Receipt Date: 20050403
  Transmission Date: 20051028
  Serious: Yes (Other)
  Sender: FDA-Public Use
  Company Number: 2005053391

PATIENT
  Age: 61 Year
  Sex: Female

DRUGS (4)
  1. BENADRYL [Suspect]
     Indication: HYPERSENSITIVITY
     Dosage: 2 CAPLETS, ORAL
     Route: 048
     Dates: start: 20050402
  2. BENADRYL CREAM ORIGINAL STRENGTH (DIPHENHYDRAMINE, ZINC ACETATE) [Suspect]
     Dosage: TOPICAL
     Route: 061
  3. PROPRANOLOL HYDROCHLORIDE [Concomitant]
  4. IBUPROFEN [Concomitant]

REACTIONS (3)
  - CHEST DISCOMFORT [None]
  - CONDITION AGGRAVATED [None]
  - RASH MACULAR [None]
